FAERS Safety Report 9733014 (Version 2)
Quarter: 2015Q3

REPORT INFORMATION
  Report Type: Spontaneous
  Country: US (occurrence: US)
  Receive Date: 20131204
  Receipt Date: 20150804
  Transmission Date: 20151125
  Serious: No
  Sender: FDA-Public Use
  Company Number: US-GILEAD-2009-0021849

PATIENT
  Age: 29 Year
  Sex: Female
  Weight: 92.99 kg

DRUGS (16)
  1. REVATIO [Concomitant]
     Active Substance: SILDENAFIL CITRATE
  2. VENTAVIS [Concomitant]
     Active Substance: ILOPROST
  3. COUMADIN [Concomitant]
     Active Substance: WARFARIN SODIUM
  4. LASIX [Concomitant]
     Active Substance: FUROSEMIDE
  5. PROZAC [Concomitant]
     Active Substance: FLUOXETINE HYDROCHLORIDE
  6. DEPO [Concomitant]
  7. METOPROLOL [Concomitant]
     Active Substance: METOPROLOL
  8. OXYGEN. [Concomitant]
     Active Substance: OXYGEN
  9. XANAX [Concomitant]
     Active Substance: ALPRAZOLAM
  10. CATAPRES [Concomitant]
     Active Substance: CLONIDINE HYDROCHLORIDE
  11. PERCOCET [Concomitant]
     Active Substance: ACETAMINOPHEN\OXYCODONE HYDROCHLORIDE
  12. PARACETAMOL/HYDROCODONE BITARTRATE [Concomitant]
  13. PAXIL [Concomitant]
     Active Substance: PAROXETINE HYDROCHLORIDE
  14. K-DUR [Concomitant]
     Active Substance: POTASSIUM CHLORIDE
  15. LETAIRIS [Suspect]
     Active Substance: AMBRISENTAN
     Indication: PULMONARY ARTERIAL HYPERTENSION
     Route: 048
     Dates: start: 20081212
  16. ATIVAN [Concomitant]
     Active Substance: LORAZEPAM

REACTIONS (1)
  - Pain [Unknown]
